FAERS Safety Report 5055537-1 (Version None)
Quarter: 2006Q3

REPORT INFORMATION
  Report Type: 
  Country: None (occurrence: None)
  Receive Date: 20060717
  Receipt Date: 20060717
  Transmission Date: 20061208
  Serious: Yes (Disabling)
  Sender: FDA-Public Use
  Company Number: None

PATIENT
  Age: 26 Year
  Sex: Male
  Weight: 97 kg

DRUGS (3)
  1. TRAZODONE HCL [Suspect]
     Indication: DEPRESSION
     Dosage: 50-100MG   QHS   PO
     Route: 048
     Dates: start: 20060224, end: 20060614
  2. TRAZODONE HCL [Suspect]
     Indication: POST-TRAUMATIC STRESS DISORDER
     Dosage: 50-100MG   QHS   PO
     Route: 048
     Dates: start: 20060224, end: 20060614
  3. PRAZOSIN HCL [Suspect]
     Indication: POST-TRAUMATIC STRESS DISORDER
     Dosage: 16MG  QHS   PO
     Route: 048
     Dates: start: 20060207, end: 20060614

REACTIONS (2)
  - PAIN [None]
  - PRIAPISM [None]
